FAERS Safety Report 18465850 (Version 1)
Quarter: 2020Q4

REPORT INFORMATION
  Report Type: Other
  Country: DE (occurrence: DE)
  Receive Date: 20201105
  Receipt Date: 20201105
  Transmission Date: 20210114
  Serious: No
  Sender: FDA-Public Use
  Company Number: DE-LUPIN PHARMACEUTICALS INC.-2020-04312

PATIENT
  Age: 44 Year
  Sex: Male
  Weight: 88 kg

DRUGS (1)
  1. SIMVASTATIN. [Suspect]
     Active Substance: SIMVASTATIN
     Indication: HYPERLIPIDAEMIA
     Dosage: 40 MILLIGRAM, QD (0-0-0-1)
     Route: 048
     Dates: start: 201705, end: 201706

REACTIONS (2)
  - Muscle discomfort [Recovered/Resolved]
  - Muscle spasms [Recovered/Resolved]
